FAERS Safety Report 19174543 (Version 1)
Quarter: 2021Q2

REPORT INFORMATION
  Report Type: Report from Study
  Country: CN (occurrence: CN)
  Receive Date: 20210423
  Receipt Date: 20210423
  Transmission Date: 20210717
  Serious: Yes (Other)
  Sender: FDA-Public Use
  Company Number: NVSC2020CN187599

PATIENT
  Age: 53 Year
  Sex: Female

DRUGS (16)
  1. TRIMETAZIDINE DIHYDROCHLORIDE [Concomitant]
     Active Substance: TRIMETAZIDINE DIHYDROCHLORIDE
     Indication: CARDIAC FAILURE
     Dosage: 35 MG, UNKNOWN
     Route: 048
     Dates: start: 20190920
  2. WARFARIN SODIUM. [Concomitant]
     Active Substance: WARFARIN SODIUM
     Indication: CARDIAC FAILURE
     Dosage: 2.25 MG, UNKNOWN
     Route: 048
     Dates: start: 20190920
  3. FLUPENTIXOL [Concomitant]
     Active Substance: FLUPENTIXOL
     Indication: SEDATION
  4. ENTRESTO [Suspect]
     Active Substance: SACUBITRIL\VALSARTAN
     Dosage: 50 MG, UNKNOWN
     Route: 048
     Dates: start: 20200403, end: 20200827
  5. FLUPENTIXOL [Concomitant]
     Active Substance: FLUPENTIXOL
     Indication: CARDIAC FAILURE
     Dosage: 1 DF
     Route: 048
     Dates: start: 20200228
  6. EUCALYPTOL [Concomitant]
     Active Substance: EUCALYPTOL
     Indication: PRE-EXISTING DISEASE
     Dosage: 0.3 G
     Route: 048
     Dates: start: 20190920, end: 20190926
  7. ENTRESTO [Suspect]
     Active Substance: SACUBITRIL\VALSARTAN
     Indication: CARDIAC FAILURE CHRONIC
     Dosage: 25 MG, UNKNOWN
     Route: 048
     Dates: start: 20190925, end: 20200402
  8. DIGOXIN. [Concomitant]
     Active Substance: DIGOXIN
     Indication: CARDIAC FAILURE
     Dosage: 0.125 MG
     Route: 048
     Dates: start: 20190920
  9. METOPROLOL SUCCINATE. [Concomitant]
     Active Substance: METOPROLOL SUCCINATE
     Indication: CARDIAC FAILURE
     Dosage: 23.75 MG
     Route: 048
     Dates: start: 20190927
  10. MELITRACEN [Concomitant]
     Active Substance: MELITRACEN
     Indication: CARDIAC FAILURE
     Dosage: 1 DF
     Route: 048
     Dates: start: 20200928
  11. ENTRESTO [Suspect]
     Active Substance: SACUBITRIL\VALSARTAN
     Dosage: 25 MG, UNKNOWN
     Route: 065
     Dates: start: 20200828
  12. AMIODARONE HYDROCHLORIDE. [Concomitant]
     Active Substance: AMIODARONE HYDROCHLORIDE
     Indication: CARDIAC FAILURE
     Dosage: 0.10 G
     Route: 048
     Dates: start: 20191014
  13. LEVOTHYROXINE SODIUM. [Concomitant]
     Active Substance: LEVOTHYROXINE SODIUM
     Indication: PRE-EXISTING DISEASE
     Dosage: 50 UG
     Route: 048
     Dates: start: 20191014
  14. SPIRONOLACTONE. [Concomitant]
     Active Substance: SPIRONOLACTONE
     Indication: CARDIAC FAILURE
     Dosage: 20 MG, UNKNOWN
     Route: 048
     Dates: start: 20190920
  15. MELITRACEN [Concomitant]
     Active Substance: MELITRACEN
     Indication: SEDATION
  16. TORASEMIDE [Concomitant]
     Active Substance: TORSEMIDE
     Indication: CARDIAC FAILURE
     Dosage: 10 MG, UNKNOWN
     Route: 048
     Dates: start: 20190920

REACTIONS (8)
  - Fatigue [Recovered/Resolved]
  - Epistaxis [Recovered/Resolved]
  - Wrong technique in product usage process [Unknown]
  - Syncope [Recovered/Resolved]
  - Vulvovaginal pruritus [Recovered/Resolved]
  - Chronic sinusitis [Not Recovered/Not Resolved]
  - Vaginal infection [Not Recovered/Not Resolved]
  - Wrong technique in product usage process [Recovered/Resolved]

NARRATIVE: CASE EVENT DATE: 20190925
